FAERS Safety Report 25956027 (Version 1)
Quarter: 2025Q4

REPORT INFORMATION
  Report Type: Spontaneous
  Country: US (occurrence: US)
  Receive Date: 20251024
  Receipt Date: 20251024
  Transmission Date: 20260117
  Serious: No
  Sender: STRIDES
  Company Number: US-STRIDES ARCOLAB LIMITED-2024SP012641

PATIENT
  Age: 32 Year
  Sex: Male

DRUGS (8)
  1. ALPRAZOLAM [Suspect]
     Active Substance: ALPRAZOLAM
     Indication: Product used for unknown indication
     Dosage: UNK
     Route: 065
  2. KETAMINE [Concomitant]
     Active Substance: KETAMINE
     Indication: Dissociative disorder
     Dosage: UNK
     Route: 065
  3. KETAMINE [Concomitant]
     Active Substance: KETAMINE
     Dosage: 1 GRAM PER MONTH
     Route: 045
     Dates: start: 201910
  4. KETAMINE [Concomitant]
     Active Substance: KETAMINE
     Dosage: 1 GRAM PER WEEK
     Route: 045
     Dates: start: 202105
  5. KETAMINE [Concomitant]
     Active Substance: KETAMINE
     Dosage: 3.5 GRAM PER WEEK
     Route: 045
     Dates: start: 202202
  6. KETAMINE [Concomitant]
     Active Substance: KETAMINE
     Dosage: UNK
     Route: 030
     Dates: start: 202301
  7. KETAMINE [Concomitant]
     Active Substance: KETAMINE
     Dosage: UNK, QD (1-2G DAILY)
     Route: 042
     Dates: start: 202304
  8. KETAMINE [Concomitant]
     Active Substance: KETAMINE
     Dosage: 1 GRAM
     Route: 042

REACTIONS (1)
  - Intentional product misuse [Unknown]
